FAERS Safety Report 6613671-6 (Version None)
Quarter: 2010Q1

REPORT INFORMATION
  Report Type: 
  Country: None (occurrence: None)
  Receive Date: 20100304
  Receipt Date: 20100226
  Transmission Date: 20100710
  Serious: Yes (Hospitalization)
  Sender: FDA-Public Use
  Company Number: US-ELI_LILLY_AND_COMPANY-US201002002946

PATIENT
  Sex: Female

DRUGS (11)
  1. HUMALOG [Suspect]
     Indication: DIABETES MELLITUS
     Dosage: 18 U, OTHER
     Dates: start: 20090901
  2. HUMALOG [Suspect]
     Dosage: UNK, AS NEEDED
  3. LISINOPRIL [Concomitant]
     Dosage: UNK, DAILY (1/D)
  4. GEMFIBROZIL [Concomitant]
     Dosage: UNK, 2/D
  5. METOPROLOL TARTRATE [Concomitant]
     Dosage: UNK, 2/D
  6. PANCREASE MT [Concomitant]
  7. METFORMIN HYDROCHLORIDE [Concomitant]
  8. XANAX [Concomitant]
     Dosage: UNK, AS NEEDED
     Dates: end: 20091006
  9. LANTUS [Concomitant]
     Dosage: 48 U, EACH EVENING
  10. DESYREL [Concomitant]
     Dosage: 50 MG, EACH EVENING
     Dates: start: 20091001
  11. LOPRESSOR [Concomitant]
     Dosage: 50 D/F, 2/D
     Dates: start: 20091001

REACTIONS (14)
  - ANAEMIA [None]
  - BACK PAIN [None]
  - BLOOD GLUCOSE FLUCTUATION [None]
  - BLOOD GLUCOSE INCREASED [None]
  - DELIRIUM FEBRILE [None]
  - DIABETES MELLITUS INADEQUATE CONTROL [None]
  - DIARRHOEA [None]
  - GLYCOSYLATED HAEMOGLOBIN INCREASED [None]
  - HYPOKALAEMIA [None]
  - HYPONATRAEMIA [None]
  - HYPOVOLAEMIA [None]
  - POOR QUALITY DRUG ADMINISTERED [None]
  - TACHYCARDIA [None]
  - VAGINAL HAEMORRHAGE [None]
